FAERS Safety Report 8046292-1 (Version None)
Quarter: 2012Q1

REPORT INFORMATION
  Report Type: 
  Country: None (occurrence: None)
  Receive Date: 20120113
  Receipt Date: 20120109
  Transmission Date: 20120608
  Serious: No
  Sender: FDA-Public Use
  Company Number: US-PFIZER INC-2012003517

PATIENT
  Sex: Female
  Weight: 74.83 kg

DRUGS (4)
  1. CADUET [Suspect]
     Indication: HYPERTENSION
     Dosage: UNK
     Dates: end: 20110101
  2. CARVEDILOL [Suspect]
     Indication: BLOOD PRESSURE INCREASED
     Dosage: UNK
  3. XALATAN [Suspect]
     Dosage: UNK
     Dates: end: 20110101
  4. CADUET [Suspect]
     Indication: BLOOD CHOLESTEROL INCREASED

REACTIONS (3)
  - DRUG INEFFECTIVE [None]
  - ASTHENIA [None]
  - BLOOD PRESSURE INCREASED [None]
